FAERS Safety Report 7769065-3 (Version None)
Quarter: 2011Q3

REPORT INFORMATION
  Report Type: 
  Country: None (occurrence: None)
  Receive Date: 20110922
  Receipt Date: 20100412
  Transmission Date: 20111222
  Serious: No
  Sender: FDA-Public Use
  Company Number: US-ASTRAZENECA-2008UW12925

PATIENT
  Sex: Male

DRUGS (13)
  1. SEROQUEL [Suspect]
     Indication: SLEEP DISORDER
     Dosage: 200-1000 MG
     Route: 048
     Dates: start: 20050114
  2. RITALIN [Concomitant]
  3. REMERON [Concomitant]
     Dosage: 15-45 MG
     Route: 048
     Dates: start: 20050114
  4. PROZAC [Concomitant]
     Dates: start: 20050105
  5. LI [Concomitant]
     Dates: start: 20050624
  6. VALIUM [Concomitant]
     Dates: start: 20071002
  7. TRAZODONE HYDROCHLORIDE [Concomitant]
     Dosage: 25-100 MG
     Dates: start: 20050105
  8. EFFEXOR [Concomitant]
     Dates: start: 20071002
  9. KLONOPIN [Concomitant]
     Route: 048
     Dates: start: 20050624
  10. A-INTERFERON [Concomitant]
     Dates: start: 20050624
  11. SEROQUEL [Suspect]
     Indication: INSOMNIA
     Dosage: 200-1000 MG
     Route: 048
     Dates: start: 20050114
  12. VISTARIL [Concomitant]
  13. ROZEREM [Concomitant]
     Indication: INSOMNIA
     Dates: start: 20071002

REACTIONS (2)
  - DIABETES MELLITUS [None]
  - PAIN IN EXTREMITY [None]
